FAERS Safety Report 7911694-8 (Version None)
Quarter: 2011Q4

REPORT INFORMATION
  Report Type: 
  Country: None (occurrence: None)
  Receive Date: 20111109
  Receipt Date: 20111029
  Transmission Date: 20120403
  Serious: Yes (Other)
  Sender: FDA-Public Use
  Company Number: ADR-2011-10737

PATIENT
  Age: 13 Year
  Sex: Female

DRUGS (1)
  1. LIORESAL [Suspect]
     Indication: CEREBRAL PALSY
     Dosage: 88.34 MCG. DAILY, INTRA

REACTIONS (4)
  - IMPLANT SITE EFFUSION [None]
  - IMPLANT SITE INFECTION [None]
  - DEVICE DISLOCATION [None]
  - HYPERSENSITIVITY [None]
